FAERS Safety Report 9802980 (Version 2)
Quarter: 2014Q1

REPORT INFORMATION
  Report Type: Spontaneous
  Country: JP (occurrence: JP)
  Receive Date: 20140108
  Receipt Date: 20140108
  Transmission Date: 20141002
  Serious: Yes (Hospitalization)
  Sender: FDA-Public Use
  Company Number: JP-ROCHE-1298510

PATIENT
  Age: 60 Year
  Sex: Female
  Weight: 46 kg

DRUGS (5)
  1. XELODA [Suspect]
     Indication: COLON CANCER RECURRENT
     Route: 048
     Dates: start: 20120316, end: 20120719
  2. XELODA [Suspect]
     Indication: COLON CANCER RECURRENT
     Dosage: IT IS ONE ADMINISTERING WEEKLY HOLIDAY MEDICINE FOR TWO WEEKS.
     Route: 048
     Dates: start: 20130801
  3. AVASTIN [Suspect]
     Indication: COLON CANCER RECURRENT
     Route: 041
     Dates: start: 20130801, end: 20130827
  4. ELPLAT [Suspect]
     Indication: COLON CANCER RECURRENT
     Dosage: DOSAGE IS UNCERTAIN.
     Route: 041
     Dates: start: 20120316, end: 20120719
  5. ELPLAT [Suspect]
     Indication: COLON CANCER RECURRENT
     Route: 041
     Dates: start: 20130801, end: 20131008

REACTIONS (1)
  - Erythema multiforme [Recovered/Resolved]
